FAERS Safety Report 17825991 (Version 1)
Quarter: 2020Q2

REPORT INFORMATION
  Report Type: Spontaneous
  Country: US (occurrence: US)
  Receive Date: 20200526
  Receipt Date: 20200526
  Transmission Date: 20200714
  Serious: Yes (Other)
  Sender: FDA-Public Use
  Company Number: US-JNJFOC-20200225952

PATIENT
  Age: 3 Year
  Sex: Male
  Weight: 14.07 kg

DRUGS (2)
  1. CHILDRENS BENADRYL ALLERGY [Suspect]
     Active Substance: DIPHENHYDRAMINE HYDROCHLORIDE
     Indication: SINUS CONGESTION
     Dosage: LAST ADMINISTRATION DATE: 16/FEB/2020?12.5 MG /5 ML TAKEN AS NEEDED BUT NOT REGULARLY AND NOT MORE T
     Route: 048
  2. CHILDRENS BENADRYL ALLERGY [Suspect]
     Active Substance: DIPHENHYDRAMINE HYDROCHLORIDE
     Indication: ACCIDENTAL EXPOSURE TO PRODUCT

REACTIONS (5)
  - Expired product administered [Unknown]
  - Accidental overdose [Recovered/Resolved]
  - Product use in unapproved indication [Unknown]
  - Heart rate increased [Recovered/Resolved]
  - Pruritus [Recovered/Resolved]

NARRATIVE: CASE EVENT DATE: 20200216
